FAERS Safety Report 6434806-4 (Version None)
Quarter: 2009Q4

REPORT INFORMATION
  Report Type: 
  Country: None (occurrence: None)
  Receive Date: 20091110
  Receipt Date: 20091015
  Transmission Date: 20100525
  Serious: Yes (Other)
  Sender: FDA-Public Use
  Company Number: CN-WYE-G04632409

PATIENT
  Sex: Male
  Weight: 77 kg

DRUGS (1)
  1. MOROCTOCOG ALFA AF OSA [Suspect]
     Indication: FACTOR VIII DEFICIENCY
     Dosage: 50 IU/KG (!A5 IU/KG) ON DEMAND
     Route: 040
     Dates: start: 20090408, end: 20091009

REACTIONS (1)
  - FACTOR VIII INHIBITION [None]
